FAERS Safety Report 24677433 (Version 1)
Quarter: 2024Q4

REPORT INFORMATION
  Report Type: Report from Study
  Country: US (occurrence: US)
  Receive Date: 20241129
  Receipt Date: 20241129
  Transmission Date: 20250115
  Serious: Yes (Other)
  Sender: BIOCON
  Company Number: US-BIOCON BIOLOGICS LIMITED-BBL2024008689

PATIENT

DRUGS (1)
  1. ADALIMUMAB [Suspect]
     Active Substance: ADALIMUMAB
     Indication: Rheumatoid arthritis
     Dosage: 40 MG, Q2W
     Route: 058
     Dates: start: 202406

REACTIONS (1)
  - Rheumatoid arthritis [Not Recovered/Not Resolved]
